FAERS Safety Report 7734637-9 (Version None)
Quarter: 2011Q3

REPORT INFORMATION
  Report Type: 
  Country: None (occurrence: None)
  Receive Date: 20110907
  Receipt Date: 20110830
  Transmission Date: 20111222
  Serious: Yes (Other)
  Sender: FDA-Public Use
  Company Number: FR-MERCK-1109USA00170

PATIENT
  Age: 65 Year
  Sex: Male

DRUGS (7)
  1. PANTOPRAZOLE [Suspect]
     Route: 042
     Dates: start: 20110602
  2. PREVISCAN [Concomitant]
     Route: 065
  3. EPIVIR [Concomitant]
     Indication: ACQUIRED IMMUNODEFICIENCY SYNDROME
     Route: 065
  4. VALSARTAN  AND HYDROCHLOROTHIAZIDE [Concomitant]
     Route: 065
  5. REYATAZ [Concomitant]
     Indication: HIV INFECTION
     Route: 065
     Dates: start: 20110615
  6. LERCANIDIPINE [Concomitant]
     Route: 065
  7. ISENTRESS [Suspect]
     Indication: ACQUIRED IMMUNODEFICIENCY SYNDROME
     Route: 048
     Dates: start: 20110615, end: 20110617

REACTIONS (2)
  - DRUG INTERACTION [None]
  - BRADYCARDIA [None]
